FAERS Safety Report 13212200 (Version 2)
Quarter: 2017Q2

REPORT INFORMATION
  Report Type: Spontaneous
  Country: US (occurrence: US)
  Receive Date: 20170210
  Receipt Date: 20170407
  Transmission Date: 20170830
  Serious: Yes (Other)
  Sender: FDA-Public Use
  Company Number: US-BAYER-2017-025010

PATIENT
  Age: 29 Year
  Sex: Female

DRUGS (1)
  1. MIRENA [Suspect]
     Active Substance: LEVONORGESTREL
     Dosage: 20 MCG/24HR, CONT
     Route: 015
     Dates: start: 20110811

REACTIONS (4)
  - Complication of device removal [Not Recovered/Not Resolved]
  - Embedded device [Not Recovered/Not Resolved]
  - Device breakage [None]
  - Malaise [None]

NARRATIVE: CASE EVENT DATE: 20170202
